FAERS Safety Report 25289129 (Version 3)
Quarter: 2025Q2

REPORT INFORMATION
  Report Type: Report from Study
  Country: CA (occurrence: CA)
  Receive Date: 20250509
  Receipt Date: 20250603
  Transmission Date: 20250717
  Serious: Yes (Other)
  Sender: DR REDDYS
  Company Number: CA-DRL-USA-CAN/2025/05/006720

PATIENT
  Age: 76 Year
  Sex: Female

DRUGS (3)
  1. ZOLEDRONIC ACID [Suspect]
     Active Substance: ZOLEDRONIC ACID
     Indication: Osteoporosis
     Route: 065
     Dates: start: 20220224, end: 20220224
  2. ZOLEDRONIC ACID [Suspect]
     Active Substance: ZOLEDRONIC ACID
     Route: 065
  3. ZOLEDRONIC ACID [Suspect]
     Active Substance: ZOLEDRONIC ACID
     Route: 065
     Dates: start: 20240326, end: 20240326

REACTIONS (12)
  - Tooth disorder [Not Recovered/Not Resolved]
  - Fall [Unknown]
  - Groin pain [Unknown]
  - Musculoskeletal pain [Not Recovered/Not Resolved]
  - Heart rate irregular [Unknown]
  - Pain in jaw [Unknown]
  - Stomatitis [Unknown]
  - Balance disorder [Unknown]
  - Limb injury [Unknown]
  - Mastication disorder [Unknown]
  - Dyspepsia [Unknown]
  - Chest injury [Unknown]

NARRATIVE: CASE EVENT DATE: 20240326
